FAERS Safety Report 16896599 (Version 2)
Quarter: 2019Q4

REPORT INFORMATION
  Report Type: Spontaneous
  Country: FR (occurrence: FR)
  Receive Date: 20191008
  Receipt Date: 20191022
  Transmission Date: 20200122
  Serious: Yes (Death)
  Sender: FDA-Public Use
  Company Number: FR-GE HEALTHCARE LIFE SCIENCES-2019CSU005036

PATIENT

DRUGS (7)
  1. OMNIPAQUE [Suspect]
     Active Substance: IOHEXOL
     Indication: SURGERY
  2. OMNIPAQUE [Suspect]
     Active Substance: IOHEXOL
     Indication: COMPUTERISED TOMOGRAM ABDOMEN
     Dosage: UNK
  3. OMNIPAQUE [Suspect]
     Active Substance: IOHEXOL
     Indication: COMPUTERISED TOMOGRAM PELVIS
  4. SODIUM CHLORIDE. [Concomitant]
     Active Substance: SODIUM CHLORIDE
     Dosage: 38 ML, SINGLE
     Dates: start: 20191001, end: 20191001
  5. OMNIPAQUE [Suspect]
     Active Substance: IOHEXOL
     Indication: LUNG NEOPLASM
  6. OMNIPAQUE [Suspect]
     Active Substance: IOHEXOL
     Indication: COMPUTERISED TOMOGRAM THORAX
     Dosage: 75 ML, SINGLE
     Route: 042
     Dates: start: 20191001, end: 20191001
  7. OMNIPAQUE [Suspect]
     Active Substance: IOHEXOL
     Indication: BREAST NEOPLASM

REACTIONS (2)
  - Vomiting [Fatal]
  - Respiratory arrest [Fatal]

NARRATIVE: CASE EVENT DATE: 20191001
